FAERS Safety Report 22036452 (Version 1)
Quarter: 2023Q1

REPORT INFORMATION
  Report Type: Spontaneous
  Country: DE (occurrence: DE)
  Receive Date: 20230225
  Receipt Date: 20230225
  Transmission Date: 20230418
  Serious: Yes (Death, Other)
  Sender: FDA-Public Use
  Company Number: DE-drreddys-LIT/GER/23/0161578

PATIENT
  Age: 78 Year
  Sex: Female

DRUGS (4)
  1. POSACONAZOLE [Suspect]
     Active Substance: POSACONAZOLE
     Indication: Mucormycosis
  2. VORICONAZOLE [Suspect]
     Active Substance: VORICONAZOLE
     Indication: Systemic mycosis
  3. VORICONAZOLE [Suspect]
     Active Substance: VORICONAZOLE
     Indication: Mucormycosis
  4. AMPHOTERICIN B [Suspect]
     Active Substance: AMPHOTERICIN B
     Indication: Mucormycosis

REACTIONS (6)
  - Death [Fatal]
  - Exophthalmos [Unknown]
  - Disease progression [Unknown]
  - General physical health deterioration [Unknown]
  - Blindness [Unknown]
  - Drug ineffective for unapproved indication [Unknown]
